FAERS Safety Report 5289731-1 (Version None)
Quarter: 2007Q2

REPORT INFORMATION
  Report Type: 
  Country: None (occurrence: None)
  Receive Date: 20070406
  Receipt Date: 20070328
  Transmission Date: 20071010
  Serious: Yes (Hospitalization, Other)
  Sender: FDA-Public Use
  Company Number: US-ABBOTT-06P-163-0351670-00

PATIENT
  Sex: Female
  Weight: 65.83 kg

DRUGS (3)
  1. BIAXIN [Suspect]
     Indication: COUGH
     Route: 048
     Dates: start: 20061104, end: 20061112
  2. BIAXIN [Suspect]
     Indication: PYREXIA
  3. VITAMIN CAP [Concomitant]
     Indication: DRUG USE FOR UNKNOWN INDICATION

REACTIONS (23)
  - ANAEMIA [None]
  - ASTHENIA [None]
  - BOWEL SOUNDS ABNORMAL [None]
  - COUGH [None]
  - DYSPNOEA [None]
  - DYSPNOEA EXERTIONAL [None]
  - DYSSTASIA [None]
  - EXERCISE TOLERANCE DECREASED [None]
  - FATIGUE [None]
  - LETHARGY [None]
  - MALAISE [None]
  - METRORRHAGIA [None]
  - ORTHOPNOEA [None]
  - PAIN [None]
  - PALLOR [None]
  - PALPITATIONS [None]
  - PANCYTOPENIA [None]
  - PHARYNGOLARYNGEAL PAIN [None]
  - PURPURA [None]
  - RASH GENERALISED [None]
  - UTERINE LEIOMYOMA [None]
  - VAGINAL HAEMORRHAGE [None]
  - WHITE BLOOD CELL COUNT DECREASED [None]
